FAERS Safety Report 10453467 (Version 2)
Quarter: 2014Q3

REPORT INFORMATION
  Report Type: Report from Study
  Country: US (occurrence: US)
  Receive Date: 20140915
  Receipt Date: 20140915
  Transmission Date: 20150326
  Serious: Yes (Other)
  Sender: FDA-Public Use
  Company Number: US-SA-2013SA107352

PATIENT
  Age: 46 Year
  Sex: Female

DRUGS (2)
  1. AUBAGIO [Suspect]
     Active Substance: TERIFLUNOMIDE
     Indication: MULTIPLE SCLEROSIS
     Route: 048
     Dates: start: 20140818
  2. AUBAGIO [Suspect]
     Active Substance: TERIFLUNOMIDE
     Indication: MULTIPLE SCLEROSIS
     Route: 048
     Dates: start: 20130929, end: 20140313

REACTIONS (11)
  - Dysmenorrhoea [Not Recovered/Not Resolved]
  - Hypokinesia [Unknown]
  - Impaired driving ability [Unknown]
  - Laryngitis [Unknown]
  - Multiple sclerosis relapse [Not Recovered/Not Resolved]
  - Gait disturbance [Unknown]
  - Fatigue [Recovering/Resolving]
  - Aphonia [Recovering/Resolving]
  - Hypoaesthesia [Recovering/Resolving]
  - Menorrhagia [Not Recovered/Not Resolved]
  - Blood pressure increased [Recovering/Resolving]
